FAERS Safety Report 15037990 (Version 1)
Quarter: 2018Q2

REPORT INFORMATION
  Report Type: Spontaneous
  Country: None (occurrence: US)
  Receive Date: 20180620
  Receipt Date: 20180620
  Transmission Date: 20180711
  Serious: No
  Sender: FDA-Public Use
  Company Number: US-DUSA PHARMACEUTICALS, INC.-2049724

PATIENT
  Sex: Male

DRUGS (1)
  1. LEVULAN KERASTICK [Suspect]
     Active Substance: AMINOLEVULINIC ACID HYDROCHLORIDE

REACTIONS (7)
  - Insomnia [None]
  - Erythema [None]
  - Application site burn [None]
  - Blister rupture [None]
  - Pain [None]
  - Application site rash [None]
  - Blister [None]
